FAERS Safety Report 17184270 (Version 2)
Quarter: 2020Q4

REPORT INFORMATION
  Report Type: Spontaneous
  Country: US (occurrence: US)
  Receive Date: 20191220
  Receipt Date: 20201222
  Transmission Date: 20210113
  Serious: No
  Sender: FDA-Public Use
  Company Number: US-RECKITT BENCKISER HEALTHCARE INT LIMITED-RB-91100-2019

PATIENT
  Age: 10 Year
  Sex: Male
  Weight: 38.55 kg

DRUGS (3)
  1. ZITHROMAX [Concomitant]
     Active Substance: AZITHROMYCIN DIHYDRATE
     Indication: SINUSITIS
     Dosage: UNK
     Route: 065
  2. DELSYM [Suspect]
     Active Substance: DEXTROMETHORPHAN
     Indication: NASAL CONGESTION
     Dosage: WAS GIVEN 10 ML AT AROUND 14:00, AT NIGHT AROUND 20:00 AND ANOTHER 10 ML AROUND 07:30 ON THE DAY OF
     Route: 065
     Dates: start: 20191007
  3. DELSYM [Suspect]
     Active Substance: DEXTROMETHORPHAN
     Indication: COUGH

REACTIONS (3)
  - Product administered to patient of inappropriate age [Recovered/Resolved]
  - Dizziness [Recovered/Resolved]
  - Accidental overdose [Recovered/Resolved]

NARRATIVE: CASE EVENT DATE: 20191007
